FAERS Safety Report 6609806-1 (Version None)
Quarter: 2010Q1

REPORT INFORMATION
  Report Type: 
  Country: None (occurrence: None)
  Receive Date: 20100302
  Receipt Date: 20100217
  Transmission Date: 20100710
  Serious: Yes (Other)
  Sender: FDA-Public Use
  Company Number: PHHY2010JP09528

PATIENT
  Age: 22 Year
  Sex: Female

DRUGS (5)
  1. CYCLOSPORINE [Suspect]
     Indication: STEM CELL TRANSPLANT
  2. METHOTREXATE [Concomitant]
  3. ANTI-HUMAN THYMOCYTE IMMUNOGLOBULIN [Concomitant]
     Indication: APLASTIC ANAEMIA
  4. FLUDARABINE PHOSPHATE [Concomitant]
     Dosage: 30 MG/M2, UNK
  5. CYTARABINE [Concomitant]
     Dosage: 50 MG/KG, UNK

REACTIONS (4)
  - BLOOD STEM CELL TRANSPLANT FAILURE [None]
  - BRONCHOPULMONARY ASPERGILLOSIS [None]
  - HISTIOCYTOSIS HAEMATOPHAGIC [None]
  - VENOOCCLUSIVE LIVER DISEASE [None]
